FAERS Safety Report 8964873 (Version 2)
Quarter: 2012Q4

REPORT INFORMATION
  Report Type: 
  Country: JP (occurrence: JP)
  Receive Date: 20121213
  Receipt Date: 20121227
  Transmission Date: 20130627
  Serious: Yes (Other)
  Sender: FDA-Public Use
  Company Number: JP-PFIZER INC-2012313583

PATIENT
  Age: 75 Year
  Sex: Male

DRUGS (12)
  1. LYRICA [Suspect]
     Indication: POST HERPETIC NEURALGIA
     Dosage: 225 mg/day
     Route: 048
  2. LYRICA [Suspect]
     Indication: SCIATICA
  3. MUCOSTA [Concomitant]
     Dosage: UNK
  4. JUVELA [Concomitant]
     Dosage: UNK
  5. ZYLORIC ^GLAXO WELLCOME^ [Concomitant]
     Dosage: UNK
  6. RABEPRAZOLE SODIUM [Concomitant]
     Dosage: UNK
  7. ROHYPNOL [Concomitant]
     Dosage: UNK
  8. MYSLEE [Concomitant]
     Dosage: UNK
  9. PURSENNID [Concomitant]
     Dosage: UNK
  10. LAXOBERON [Concomitant]
     Dosage: UNK
  11. URIEF [Concomitant]
     Dosage: UNK
  12. KAMALA [Concomitant]
     Dosage: UNK

REACTIONS (3)
  - Leukoplakia oral [Unknown]
  - Oral disorder [Unknown]
  - Oral pain [Unknown]
